FAERS Safety Report 5744598-X (Version None)
Quarter: 2008Q2

REPORT INFORMATION
  Report Type: 
  Country: None (occurrence: None)
  Receive Date: 20080516
  Receipt Date: 20080505
  Transmission Date: 20081010
  Serious: Yes (Other)
  Sender: FDA-Public Use
  Company Number: 2008S1006318

PATIENT
  Age: 60 Year
  Sex: Male

DRUGS (5)
  1. METOPROLOL TARTRATE TABLETS, UPS (25 MG) [Suspect]
     Indication: HYPERTENSION
     Dosage: 25 MG; TWICE A DAY; ORAL
     Route: 048
     Dates: start: 20070723, end: 20080126
  2. SIMVASTATIN [Concomitant]
  3. METFORMIN HYDROCHLORIDE [Concomitant]
  4. NITROGLYCERIN [Concomitant]
  5. OXYCODONE WITH APAP [Concomitant]

REACTIONS (2)
  - NIGHTMARE [None]
  - SKIN LACERATION [None]
